FAERS Safety Report 13129707 (Version 3)
Quarter: 2017Q1

REPORT INFORMATION
  Report Type: Spontaneous
  Country: US (occurrence: US)
  Receive Date: 20170119
  Receipt Date: 20170329
  Transmission Date: 20170428
  Serious: No
  Sender: FDA-Public Use
  Company Number: US-PFIZER INC-2017017349

PATIENT
  Age: 10 Year
  Sex: Female
  Weight: 44 kg

DRUGS (8)
  1. LINCOCIN [Suspect]
     Active Substance: LINCOMYCIN
     Indication: NASOPHARYNGITIS
  2. LINCOCIN [Suspect]
     Active Substance: LINCOMYCIN
     Indication: COUGH
     Dosage: 300 MG, SINGLE
     Route: 030
     Dates: start: 20160229, end: 20160229
  3. LINCOCIN [Suspect]
     Active Substance: LINCOMYCIN
     Indication: ACUTE SINUSITIS
  4. KENALOG [Suspect]
     Active Substance: TRIAMCINOLONE ACETONIDE
     Indication: COUGH
     Dosage: 40 MG, SINGLE
     Route: 030
     Dates: start: 20160229, end: 20160229
  5. KENALOG [Suspect]
     Active Substance: TRIAMCINOLONE ACETONIDE
     Indication: RHINORRHOEA
  6. KENALOG [Suspect]
     Active Substance: TRIAMCINOLONE ACETONIDE
     Indication: NASOPHARYNGITIS
  7. KENALOG [Suspect]
     Active Substance: TRIAMCINOLONE ACETONIDE
     Indication: ACUTE SINUSITIS
  8. LINCOCIN [Suspect]
     Active Substance: LINCOMYCIN
     Indication: RHINORRHOEA

REACTIONS (3)
  - Skin disorder [Not Recovered/Not Resolved]
  - Injection site discolouration [Not Recovered/Not Resolved]
  - Muscle atrophy [Not Recovered/Not Resolved]

NARRATIVE: CASE EVENT DATE: 201602
